FAERS Safety Report 17510086 (Version 1)
Quarter: 2020Q1

REPORT INFORMATION
  Report Type: Spontaneous
  Country: US (occurrence: US)
  Receive Date: 20200306
  Receipt Date: 20200306
  Transmission Date: 20200409
  Serious: No
  Sender: FDA-Public Use
  Company Number: US-PFIZER INC-2020097756

PATIENT
  Age: 62 Year
  Sex: Male

DRUGS (2)
  1. GABITRIL [Concomitant]
     Active Substance: TIAGABINE HYDROCHLORIDE
     Indication: EPILEPSY
     Dosage: 16 MG, 3X/DAY
     Route: 048
  2. PHENYTOIN SODIUM. [Suspect]
     Active Substance: PHENYTOIN SODIUM
     Indication: SEIZURE
     Dosage: 400 MG, 1X/DAY (AT BEDTIME)
     Route: 048

REACTIONS (1)
  - Drug ineffective [Unknown]
